FAERS Safety Report 17454517 (Version 1)
Quarter: 2020Q1

REPORT INFORMATION
  Report Type: Spontaneous
  Country: US (occurrence: US)
  Receive Date: 20200222
  Receipt Date: 20200222
  Transmission Date: 20200409
  Serious: Yes (Other)
  Sender: FDA-Public Use
  Company Number: None

PATIENT
  Age: 35 Year
  Sex: Male
  Weight: 96.75 kg

DRUGS (1)
  1. SCABIES + CHIGGER RELIEF! BY HANNAH YOSEPH, MD [Suspect]
     Active Substance: CANNABIS SATIVA SEED OIL\HERBALS
     Indication: ACARODERMATITIS
     Route: 061
     Dates: start: 20190326, end: 20190410

REACTIONS (5)
  - Pain [None]
  - Rash [None]
  - Condition aggravated [None]
  - Product quality issue [None]
  - Swelling [None]

NARRATIVE: CASE EVENT DATE: 20191223
